FAERS Safety Report 4284267-9 (Version None)
Quarter: 2004Q1

REPORT INFORMATION
  Report Type: 
  Country: None (occurrence: None)
  Receive Date: 20040203
  Receipt Date: 20021127
  Transmission Date: 20041129
  Serious: Yes (Hospitalization, Disabling, Other)
  Sender: FDA-Public Use
  Company Number: WAES 0212USA00306

PATIENT
  Age: 62 Year
  Sex: Male

DRUGS (95)
  1. CORDARONE [Suspect]
     Dates: start: 19991101, end: 19991201
  2. CORDARONE [Suspect]
     Dates: start: 19991105
  3. CORDARONE [Suspect]
     Dates: start: 20010228
  4. CORDARONE [Suspect]
     Dates: start: 20010228
  5. CORDARONE [Suspect]
     Dates: start: 20000101
  6. CORDARONE [Suspect]
     Dates: start: 20000101
  7. CORDARONE [Suspect]
     Dates: start: 20010418
  8. CORDARONE [Suspect]
     Dates: start: 19991101, end: 19991201
  9. CORDARONE [Suspect]
     Dates: start: 19991201
  10. CORDARONE [Suspect]
     Dates: start: 20010701
  11. NORVASC [Concomitant]
     Route: 048
  12. LOTREL [Concomitant]
  13. AMOXIL [Concomitant]
     Dates: start: 20001204, end: 20001214
  14. AMOXIL [Concomitant]
     Dates: start: 20010228
  15. AMOXIL [Concomitant]
     Dates: start: 20001220, end: 20001230
  16. AMOXIL [Concomitant]
     Dates: start: 20020107
  17. ASPIRIN [Concomitant]
  18. LIPITOR [Concomitant]
  19. LIPITOR [Concomitant]
     Route: 048
  20. Z-PAK [Concomitant]
     Dates: start: 20011213
  21. CORTISPORIN OINTMENT [Concomitant]
     Route: 001
     Dates: start: 19980729
  22. CORTISPORIN OINTMENT [Concomitant]
     Route: 001
     Dates: start: 19990119
  23. CORTISPORIN OINTMENT [Concomitant]
     Route: 001
     Dates: start: 19990907
  24. VANCENASE [Concomitant]
     Route: 055
     Dates: start: 19990119
  25. KEFZOL [Concomitant]
     Dates: start: 19980729
  26. KEFZOL [Concomitant]
     Dates: start: 19981201
  27. CEFZIL [Concomitant]
     Route: 048
  28. CEFTIN [Concomitant]
     Dates: start: 19990919
  29. KEFLEX [Concomitant]
     Dates: start: 19980729
  30. KEFLEX [Concomitant]
     Dates: start: 19981201
  31. KEFLEX [Concomitant]
     Dates: start: 20000801
  32. KEFLEX [Concomitant]
     Dates: start: 20000830
  33. ZYRTEC [Concomitant]
  34. CIMETIDINE [Concomitant]
     Dates: start: 19980122, end: 19990819
  35. MYCELEX [Concomitant]
     Dates: start: 20010909
  36. LANOXIN [Concomitant]
     Dates: end: 19991029
  37. DIGOXIN [Concomitant]
     Dates: start: 19980122
  38. CARDIZEM [Concomitant]
     Dates: start: 20000726, end: 20001001
  39. CARDIZEM [Concomitant]
     Dates: start: 20010226
  40. CARDIZEM [Concomitant]
     Route: 048
     Dates: start: 20001101
  41. CARDIZEM [Concomitant]
     Dates: start: 19961218
  42. CARDIZEM [Concomitant]
     Dates: start: 19970820
  43. CARDIZEM [Concomitant]
  44. DILTIAZEM HYDROCHLORIDE [Concomitant]
     Dates: start: 19970820
  45. CARDURA [Concomitant]
     Dates: start: 19940626, end: 19941129
  46. CARDURA [Concomitant]
     Dates: start: 19991130
  47. CARDURA [Concomitant]
     Dates: start: 19980509
  48. ERYTHROMYCIN [Concomitant]
     Dates: start: 19981104
  49. ERYTHROMYCIN [Concomitant]
     Dates: start: 19991227
  50. ERYTHROMYCIN [Concomitant]
     Dates: start: 20000106
  51. FELODIPINE [Concomitant]
     Dates: start: 19990318
  52. ALLEGRA-D [Concomitant]
     Route: 048
     Dates: start: 20010831
  53. NEURONTIN [Concomitant]
     Dates: start: 20000622
  54. GEMFIBROZIL [Concomitant]
     Dates: start: 19990401
  55. HYCODAN [Concomitant]
     Dates: start: 19991227
  56. HYCODAN [Concomitant]
     Dates: start: 19981104
  57. DIOVAN HCT [Concomitant]
  58. DIOVAN HCT [Concomitant]
     Dates: start: 19991109
  59. INFLUENZA VIRUS VACCINE (UNSPECIFIED) [Concomitant]
     Dates: start: 20011102
  60. LINCOCIN [Concomitant]
     Dates: start: 19981104
  61. LINCOCIN [Concomitant]
     Dates: start: 19991227
  62. LINCOCIN [Concomitant]
     Dates: start: 20000106
  63. LINCOCIN [Concomitant]
     Dates: start: 20000830
  64. LINCOCIN [Concomitant]
     Dates: start: 20001009
  65. LORAZEPAM [Concomitant]
     Dates: start: 20000718
  66. MEVACOR [Concomitant]
     Dates: start: 19981201
  67. MEVACOR [Concomitant]
     Dates: start: 19990326
  68. MEVACOR [Concomitant]
     Route: 048
     Dates: start: 19990929
  69. METFORMIN [Concomitant]
     Dates: start: 19990101
  70. GLUCOPHAGE [Concomitant]
     Dates: start: 20000101, end: 20020111
  71. GLUCOPHAGE [Concomitant]
     Dates: start: 20020101
  72. ROBAXIN [Concomitant]
     Route: 048
     Dates: start: 19980628
  73. SOLU-MEDROL [Concomitant]
     Dates: start: 19990119
  74. SOLU-MEDROL [Concomitant]
     Route: 030
     Dates: start: 20010831
  75. TOPROL-XL [Concomitant]
     Dates: end: 19991027
  76. LOPRESSOR [Concomitant]
     Dates: start: 19990510
  77. NADOLOL [Concomitant]
     Dates: start: 20000101, end: 20000726
  78. NAPROXEN [Concomitant]
  79. NIACIN [Concomitant]
     Dates: start: 19980724, end: 19980911
  80. NIACIN [Concomitant]
     Dates: start: 19980717, end: 19980723
  81. NITROGLYCERIN [Concomitant]
  82. PRILOSEC [Concomitant]
     Dates: start: 19990113
  83. QUINAMM [Concomitant]
     Dates: start: 19980223
  84. RADIOGRAPHIC CONTRAST MEDIUM (UNSPECIFIED) [Suspect]
     Dates: start: 20010109, end: 20010109
  85. RANITIDINE-BC [Concomitant]
     Dates: start: 19990510
  86. ZANTAC [Concomitant]
  87. ZOCOR [Suspect]
     Route: 048
     Dates: start: 19980501, end: 19980714
  88. ZOCOR [Suspect]
     Route: 048
     Dates: start: 19980910, end: 19990520
  89. ZOCOR [Suspect]
     Route: 048
     Dates: start: 20010926, end: 20020111
  90. ZOCOR [Suspect]
     Route: 048
     Dates: start: 19991029, end: 20010926
  91. TETANUS TOXOID [Concomitant]
     Route: 030
     Dates: start: 19980417
  92. TRI-NASAL [Concomitant]
     Dates: start: 20011213
  93. DIOVAN [Concomitant]
  94. DIOVAN [Concomitant]
     Dates: start: 20010725
  95. COUMADIN [Concomitant]
     Route: 048
     Dates: start: 20001108, end: 20010926

REACTIONS (43)
  - ADENOMA BENIGN [None]
  - ANXIETY [None]
  - AORTIC VALVE SCLEROSIS [None]
  - ATRIAL FIBRILLATION [None]
  - ATRIAL FLUTTER [None]
  - BENIGN COLONIC POLYP [None]
  - BLADDER DISORDER [None]
  - BRADYCARDIA [None]
  - BRONCHITIS [None]
  - CANDIDIASIS [None]
  - CAROTID ARTERY DISEASE [None]
  - CHEST PAIN [None]
  - COUGH [None]
  - DIABETES MELLITUS NON-INSULIN-DEPENDENT [None]
  - DIABETIC RETINOPATHY [None]
  - DIZZINESS [None]
  - DRUG INTERACTION [None]
  - DYSPEPSIA [None]
  - DYSPNOEA [None]
  - EAR DISORDER [None]
  - FLUSHING [None]
  - GROIN PAIN [None]
  - INTERVERTEBRAL DISC DISPLACEMENT [None]
  - MITRAL VALVE INCOMPETENCE [None]
  - MUSCLE CRAMP [None]
  - MYALGIA [None]
  - OTITIS EXTERNA [None]
  - PAIN IN EXTREMITY [None]
  - PELVIC PAIN [None]
  - PHARYNGITIS [None]
  - PIGMENTED NAEVUS [None]
  - RENAL ARTERY STENOSIS [None]
  - RENAL FAILURE ACUTE [None]
  - RHABDOMYOLYSIS [None]
  - RHINITIS ALLERGIC [None]
  - SENSATION OF FOREIGN BODY [None]
  - SICK SINUS SYNDROME [None]
  - SINUSITIS [None]
  - SWEAT DISCOLOURATION [None]
  - TONGUE DISORDER [None]
  - TRICUSPID VALVE INCOMPETENCE [None]
  - UPPER RESPIRATORY TRACT INFECTION [None]
  - VISUAL ACUITY REDUCED [None]
